FAERS Safety Report 9121706 (Version 4)
Quarter: 2013Q4

REPORT INFORMATION
  Report Type: Spontaneous
  Country: US (occurrence: US)
  Receive Date: 20130227
  Receipt Date: 20131015
  Transmission Date: 20140711
  Serious: No
  Sender: FDA-Public Use
  Company Number: US-BIOGENIDEC-2013BI016573

PATIENT
  Age: 34 Year
  Sex: Female

DRUGS (2)
  1. TYSABRI [Suspect]
     Indication: MULTIPLE SCLEROSIS
     Route: 042
     Dates: start: 20111107, end: 20120928
  2. TYSABRI [Suspect]
     Indication: MULTIPLE SCLEROSIS
     Route: 042
     Dates: start: 20130222, end: 20130816

REACTIONS (8)
  - Bronchitis [Recovered/Resolved with Sequelae]
  - Confusional state [Not Recovered/Not Resolved]
  - Fungal infection [Recovered/Resolved]
  - Decreased immune responsiveness [Recovered/Resolved with Sequelae]
  - Mental disorder [Not Recovered/Not Resolved]
  - Frustration [Not Recovered/Not Resolved]
  - Urinary tract infection [Recovered/Resolved]
  - Malaise [Recovered/Resolved with Sequelae]
